FAERS Safety Report 21250657 (Version 1)
Quarter: 2022Q3

REPORT INFORMATION
  Report Type: Spontaneous
  Country: US (occurrence: US)
  Receive Date: 20220824
  Receipt Date: 20220824
  Transmission Date: 20221027
  Serious: Yes (Hospitalization)
  Sender: FDA-Public Use
  Company Number: US-ABBVIE-22K-163-4515230-00

PATIENT
  Sex: Male

DRUGS (1)
  1. IMBRUVICA [Suspect]
     Active Substance: IBRUTINIB
     Indication: Graft versus host disease
     Route: 048

REACTIONS (2)
  - Endotracheal intubation [Unknown]
  - Intensive care [Unknown]
